FAERS Safety Report 5213312-9 (Version None)
Quarter: 2007Q1

REPORT INFORMATION
  Report Type: 
  Country: None (occurrence: None)
  Receive Date: 20070119
  Receipt Date: 20060420
  Transmission Date: 20070707
  Serious: Yes (Hospitalization, Other)
  Sender: FDA-Public Use
  Company Number: A01200600477

PATIENT
  Age: 62 Year
  Sex: Female
  Weight: 90 kg

DRUGS (5)
  1. ARIXTRA [Suspect]
     Indication: DEEP VEIN THROMBOSIS
     Dosage: 2.5MG PER DAY
     Route: 058
     Dates: start: 20060114, end: 20060101
  2. CYCLOBENZAPRINE HCL [Concomitant]
  3. HYDROCODONE [Concomitant]
  4. FERROUS GLUCONATE [Concomitant]
  5. MORPHINE SULFATE [Concomitant]

REACTIONS (3)
  - HAEMORRHAGE [None]
  - OEDEMA PERIPHERAL [None]
  - PAIN IN EXTREMITY [None]
